FAERS Safety Report 21794462 (Version 1)
Quarter: 2022Q4

REPORT INFORMATION
  Report Type: Spontaneous
  Country: US (occurrence: None)
  Receive Date: 20221223
  Receipt Date: 20221223
  Transmission Date: 20230113
  Serious: Yes (Life-Threatening)
  Sender: FDA-Public Use
  Company Number: None

PATIENT
  Age: 62 Year
  Sex: Female

DRUGS (2)
  1. MAGNESIUM [Suspect]
     Active Substance: MAGNESIUM
  2. MAGNESIUM [Suspect]
     Active Substance: MAGNESIUM

REACTIONS (5)
  - Product preparation error [None]
  - Product preparation error [None]
  - Product dispensing error [None]
  - Incorrect dose administered [None]
  - Hyponatraemia [None]
